FAERS Safety Report 7563161-1 (Version None)
Quarter: 2011Q2

REPORT INFORMATION
  Report Type: 
  Country: None (occurrence: None)
  Receive Date: 20110622
  Receipt Date: 20110405
  Transmission Date: 20111010
  Serious: No
  Sender: FDA-Public Use
  Company Number: US-BRISTOL-MYERS SQUIBB COMPANY-15644727

PATIENT
  Sex: Female

DRUGS (1)
  1. AZACTAM [Suspect]
     Route: 030
     Dates: start: 20110329

REACTIONS (1)
  - SWELLING [None]
